FAERS Safety Report 9781946 (Version 1)
Quarter: 2013Q4

REPORT INFORMATION
  Report Type: Spontaneous
  Country: RU (occurrence: RU)
  Receive Date: 20131225
  Receipt Date: 20131225
  Transmission Date: 20140711
  Serious: Yes (Hospitalization)
  Sender: FDA-Public Use
  Company Number: PHHY2013RU151090

PATIENT
  Age: 23 Year
  Sex: Female

DRUGS (1)
  1. VOLTAREN [Suspect]
     Route: 030

REACTIONS (4)
  - Odynophagia [Unknown]
  - Rash [Unknown]
  - Pruritus [Unknown]
  - Erythema [Unknown]
